FAERS Safety Report 6926217-X (Version None)
Quarter: 2010Q3

REPORT INFORMATION
  Report Type: 
  Country: None (occurrence: None)
  Receive Date: 20100813
  Receipt Date: 20100813
  Transmission Date: 20110219
  Serious: Yes (Life-Threatening, Hospitalization)
  Sender: FDA-Public Use
  Company Number: None

PATIENT
  Age: 48 Year
  Sex: Female
  Weight: 70 kg

DRUGS (11)
  1. CARBAMAZEPINE [Suspect]
     Indication: BIPOLAR DISORDER
     Dosage: 200MG TWICE DAILY PO
     Route: 048
     Dates: start: 20100715, end: 20100803
  2. CRESTOR [Concomitant]
  3. METFORMIN HCL [Concomitant]
  4. ACETAMINOPHEN AND HYDROCODONE BITARTRATE [Concomitant]
  5. ACTOS [Concomitant]
  6. AVAPRO [Concomitant]
  7. PAROXETINE HCL [Concomitant]
  8. OMEPRAZOLE [Concomitant]
  9. LITHIUM CARBONATE [Concomitant]
  10. INDOMETHACIN [Concomitant]
  11. CARBAMAZEPINE [Concomitant]

REACTIONS (2)
  - ASTHMA [None]
  - STEVENS-JOHNSON SYNDROME [None]
